FAERS Safety Report 5005395-6 (Version None)
Quarter: 2006Q2

REPORT INFORMATION
  Report Type: 
  Country: None (occurrence: None)
  Receive Date: 20060518
  Receipt Date: 20051019
  Transmission Date: 20061013
  Serious: Yes (Death, Hospitalization)
  Sender: FDA-Public Use
  Company Number: US-MERCK-0510USA08350

PATIENT
  Age: 75 Year
  Sex: Male
  Weight: 84 kg

DRUGS (12)
  1. VIOXX [Suspect]
     Indication: PAIN
     Route: 048
     Dates: end: 20040723
  2. AMBIEN [Concomitant]
     Indication: SLEEP DISORDER
     Route: 065
  3. COUMADIN [Concomitant]
     Indication: ANTICOAGULANT THERAPY
     Route: 065
     Dates: end: 20040723
  4. AMITRIPTYLIN [Concomitant]
     Route: 065
  5. GLUCOVANCE [Concomitant]
     Route: 065
  6. GLUCOTROL [Concomitant]
     Route: 065
  7. CAPTOPRIL [Concomitant]
     Route: 065
  8. METFORMIN [Concomitant]
     Route: 065
  9. ALBUTEROL [Concomitant]
     Route: 065
  10. TRAMADOL HYDROCHLORIDE [Concomitant]
     Route: 065
  11. NORTRIPTYLINE [Concomitant]
     Route: 065
  12. GLYBURIDE [Concomitant]
     Route: 065

REACTIONS (2)
  - ABSCESS LIMB [None]
  - MYOCARDIAL INFARCTION [None]
